FAERS Safety Report 9503544 (Version 3)
Quarter: 2014Q1

REPORT INFORMATION
  Report Type: Spontaneous
  Country: FR (occurrence: FR)
  Receive Date: 20130906
  Receipt Date: 20140113
  Transmission Date: 20141002
  Serious: Yes (Hospitalization)
  Sender: FDA-Public Use
  Company Number: FR-LUNDBECK-DKLU1093338

PATIENT
  Age: 68 Year
  Sex: Male

DRUGS (3)
  1. ONFI [Suspect]
     Indication: PRODUCT USED FOR UNKNOWN INDICATION
     Route: 048
     Dates: start: 20130727, end: 20130802
  2. RIVOTRIL [Suspect]
     Indication: PRODUCT USED FOR UNKNOWN INDICATION
     Route: 050
     Dates: start: 20130803, end: 20130806
  3. LAMICTAL [Concomitant]
     Indication: PRODUCT USED FOR UNKNOWN INDICATION
     Dates: start: 20130727

REACTIONS (4)
  - Disturbance in attention [Recovered/Resolved]
  - Bronchial obstruction [Recovered/Resolved]
  - Respiratory distress [Recovered/Resolved]
  - Aspiration [Recovered/Resolved]
